FAERS Safety Report 21273649 (Version 2)
Quarter: 2022Q3

REPORT INFORMATION
  Report Type: Spontaneous
  Country: US (occurrence: US)
  Receive Date: 20220831
  Receipt Date: 20220908
  Transmission Date: 20221026
  Serious: No
  Sender: FDA-Public Use
  Company Number: US-PFIZER INC-202201104614

PATIENT
  Age: 74 Year
  Sex: Female
  Weight: 78.02 kg

DRUGS (2)
  1. IBRANCE [Suspect]
     Active Substance: PALBOCICLIB
     Indication: Breast cancer stage IV
     Dosage: 125 MG, 1X/DAY
  2. LETROZOLE [Concomitant]
     Active Substance: LETROZOLE
     Indication: Hormone therapy
     Dosage: 2.5 MG, 1X/DAY

REACTIONS (2)
  - Tooth extraction [Unknown]
  - Oral discomfort [Not Recovered/Not Resolved]

NARRATIVE: CASE EVENT DATE: 20220801
